FAERS Safety Report 8435987-3 (Version None)
Quarter: 2012Q2

REPORT INFORMATION
  Report Type: 
  Country: None (occurrence: None)
  Receive Date: 20120614
  Receipt Date: 20120531
  Transmission Date: 20120825
  Serious: Yes (Hospitalization, Disabling)
  Sender: FDA-Public Use
  Company Number: GB-WATSON-2012-08925

PATIENT
  Age: 70 Year
  Sex: Female

DRUGS (1)
  1. RAMIPRIL [Suspect]
     Indication: HYPERTENSION
     Dosage: RAMIPRIL GRADUALLY INCREASED, THE LAST INCREASE BEING 3 WEEKS PREVIOUSLY TO HOSPITAL ADMISSION
     Route: 048
     Dates: start: 20110801

REACTIONS (4)
  - CELLULITIS [None]
  - PEMPHIGOID [None]
  - DERMATITIS ALLERGIC [None]
  - DERMATITIS [None]
